FAERS Safety Report 10095000 (Version 1)
Quarter: 2014Q2

REPORT INFORMATION
  Report Type: Spontaneous
  Country: US (occurrence: US)
  Receive Date: 20140422
  Receipt Date: 20140422
  Transmission Date: 20141212
  Serious: No
  Sender: FDA-Public Use
  Company Number: US-BAYER-2014-058430

PATIENT
  Age: 75 Year
  Sex: Female
  Weight: 78.91 kg

DRUGS (5)
  1. ALEVE CAPLET [Suspect]
     Indication: ANALGESIC THERAPY
     Dosage: 2 DF, QD
     Route: 048
  2. SIMVASTATIN [Concomitant]
     Dosage: UNK
  3. BYSTOLIC [Concomitant]
     Dosage: UNK
  4. OMEPRAZOL [Concomitant]
     Dosage: 40 MG, UNK
  5. DIAZEPAM [Concomitant]
     Dosage: 0.5 MG, UNK

REACTIONS (1)
  - Drug ineffective [None]
